FAERS Safety Report 5230036-2 (Version None)
Quarter: 2007Q1

REPORT INFORMATION
  Report Type: 
  Country: None (occurrence: None)
  Receive Date: 20070206
  Receipt Date: 20060921
  Transmission Date: 20070707
  Serious: No
  Sender: FDA-Public Use
  Company Number: HQWYE530311SEP06

PATIENT
  Age: 59 Year
  Sex: Male

DRUGS (2)
  1. PAXIL [Suspect]
     Indication: DRUG USE FOR UNKNOWN INDICATION
     Route: 048
  2. ADVIL [Suspect]
     Indication: TRAUMATIC ARTHRITIS
     Route: 048

REACTIONS (3)
  - ARRHYTHMIA [None]
  - DRUG HYPERSENSITIVITY [None]
  - TACHYCARDIA [None]
